FAERS Safety Report 16171307 (Version 1)
Quarter: 2019Q2

REPORT INFORMATION
  Report Type: Spontaneous
  Country: US (occurrence: US)
  Receive Date: 20190408
  Receipt Date: 20190408
  Transmission Date: 20190711
  Serious: No
  Sender: FDA-Public Use
  Company Number: US-TARO-2018TAR00435

PATIENT
  Sex: Female

DRUGS (1)
  1. HYDROCORTISONE 1% W/ACETIC ACID 2% OTIC SOLUTION USP [Suspect]
     Active Substance: HYDROCORTISONE
     Indication: FUNGAL INFECTION
     Route: 001

REACTIONS (4)
  - Swelling [Unknown]
  - Pyrexia [Recovered/Resolved]
  - Product prescribing error [Recovered/Resolved]
  - Pain [Unknown]
